FAERS Safety Report 9298244 (Version 1)
Quarter: 2013Q2

REPORT INFORMATION
  Report Type: Spontaneous
  Country: US (occurrence: US)
  Receive Date: 20130520
  Receipt Date: 20130520
  Transmission Date: 20140414
  Serious: No
  Sender: FDA-Public Use
  Company Number: US-B.I. PHARMACEUTICALS,INC./RIDGEFIELD-2013-BI-13652BP

PATIENT
  Age: 57 Year
  Sex: Female
  Weight: 77 kg

DRUGS (2)
  1. MICARDIS HCT [Suspect]
     Indication: HYPERTENSION
     Dosage: STRENGTH: 80MG/25MG; DAILY DOSE: 80MG/25 MG
     Route: 048
     Dates: start: 2008
  2. SYNTHROID [Concomitant]
     Indication: BASEDOW^S DISEASE
     Dosage: 125 MCG
     Route: 048

REACTIONS (1)
  - Rash generalised [Not Recovered/Not Resolved]
